FAERS Safety Report 6635645-1 (Version None)
Quarter: 2010Q1

REPORT INFORMATION
  Report Type: 
  Country: None (occurrence: None)
  Receive Date: 20100315
  Receipt Date: 20100309
  Transmission Date: 20100710
  Serious: Yes (Hospitalization)
  Sender: FDA-Public Use
  Company Number: FR-AMGEN-UK359952

PATIENT
  Sex: Female

DRUGS (7)
  1. ARANESP [Suspect]
     Indication: RENAL FAILURE CHRONIC
     Route: 058
     Dates: start: 20080801, end: 20081001
  2. MIRCERA [Suspect]
     Route: 058
     Dates: start: 20081002, end: 20090105
  3. ARAVA [Concomitant]
     Route: 065
     Dates: start: 20070301, end: 20081001
  4. NEORECORMON [Concomitant]
     Dates: start: 20090320, end: 20090325
  5. OCTAGAM [Concomitant]
     Route: 065
     Dates: start: 20090203, end: 20090207
  6. UNSPECIFIED INTRAVENOUS FLUIDS [Concomitant]
     Route: 042
     Dates: start: 20081107, end: 20090210
  7. BLOOD, WHOLE [Concomitant]

REACTIONS (1)
  - APLASIA PURE RED CELL [None]
